FAERS Safety Report 8996194 (Version 1)
Quarter: 2013Q1

REPORT INFORMATION
  Report Type: Report from Study
  Country: GB (occurrence: GB)
  Receive Date: 20130103
  Receipt Date: 20130103
  Transmission Date: 20140127
  Serious: Yes (Hospitalization)
  Sender: FDA-Public Use
  Company Number: GB-US-EMD SERONO, INC.-7184992

PATIENT
  Age: 9 Year
  Sex: Male

DRUGS (1)
  1. SAIZEN [Suspect]
     Indication: KEARNS-SAYRE SYNDROME
     Route: 058
     Dates: start: 20120302

REACTIONS (3)
  - Mitochondrial myopathy [Unknown]
  - Confusional state [Unknown]
  - Somnolence [Unknown]
